FAERS Safety Report 13391386 (Version 1)
Quarter: 2017Q1

REPORT INFORMATION
  Report Type: Spontaneous
  Country: BR (occurrence: BR)
  Receive Date: 20170331
  Receipt Date: 20170331
  Transmission Date: 20170429
  Serious: Yes (Other)
  Sender: FDA-Public Use
  Company Number: BR-TOLMAR, INC.-2017BR003873

PATIENT
  Age: 60 Year
  Sex: Male

DRUGS (4)
  1. CALTRATE                           /00944201/ [Concomitant]
     Active Substance: CALCIUM CARBONATE\CHOLECALCIFEROL
     Dosage: 1 UNK, DAILY
     Dates: start: 201405, end: 2015
  2. CASODEX [Concomitant]
     Active Substance: BICALUTAMIDE
     Dosage: 1 UNK, DAILY
     Route: 048
     Dates: start: 2015
  3. ELIGARD [Suspect]
     Active Substance: LEUPROLIDE ACETATE
     Dosage: 22.5 UNK, UNK
     Route: 058
     Dates: start: 20170321
  4. ELIGARD [Suspect]
     Active Substance: LEUPROLIDE ACETATE
     Indication: PROSTATE CANCER
     Dosage: 22.5 MG, UNK
     Route: 058
     Dates: start: 201405, end: 2015

REACTIONS (5)
  - Hyperhidrosis [Recovered/Resolved]
  - Prostatic specific antigen increased [Unknown]
  - Paralysis [Recovered/Resolved]
  - Metastases to bone [Not Recovered/Not Resolved]
  - Injection site nodule [Recovered/Resolved]

NARRATIVE: CASE EVENT DATE: 201405
